FAERS Safety Report 7789387-X (Version None)
Quarter: 2011Q3

REPORT INFORMATION
  Report Type: 
  Country: None (occurrence: None)
  Receive Date: 20110930
  Receipt Date: 20100730
  Transmission Date: 20111222
  Serious: Yes (Hospitalization)
  Sender: FDA-Public Use
  Company Number: US-BAYER-201020849NA

PATIENT
  Age: 18 Year
  Sex: Female
  Weight: 68.027 kg

DRUGS (15)
  1. GUAIFENEX [Concomitant]
     Indication: BRONCHITIS
     Dosage: UNK UNK, QD
     Dates: start: 20031001, end: 20031103
  2. BIAXIN XL [Concomitant]
     Indication: ASTHMA
     Dosage: 500 MG, BID
  3. GENTAMYCIN SULFATE [Concomitant]
     Dosage: UNK UNK, PRN
  4. KEFTAB [Concomitant]
     Dosage: UNK UNK, PRN
  5. MOTRIN [Concomitant]
     Dosage: UNK UNK, PRN
  6. ENTEX CAP [Concomitant]
     Dosage: UNK UNK, BID
  7. YASMIN [Suspect]
     Indication: MENORRHAGIA
  8. AMOXICILLIN [Concomitant]
     Dosage: UNK UNK, PRN
  9. CLINDAMYCIN [Concomitant]
     Dosage: UNK UNK, PRN
  10. YASMIN [Suspect]
     Indication: PRODUCT USED FOR UNKNOWN INDICATION
     Dosage: UNK
     Route: 048
     Dates: start: 20030901, end: 20031101
  11. CLARITHROMYCIN [Concomitant]
     Dosage: UNK UNK, PRN
  12. IBUPROFEN [Concomitant]
     Dosage: UNK UNK, PRN
  13. ALBUTEROL [Concomitant]
     Indication: BRONCHITIS
     Dosage: UNK UNK, TID
     Dates: start: 20000101, end: 20030101
  14. LEVAQUIN [Concomitant]
  15. FLOVENT [Concomitant]
     Indication: ASTHMA
     Dosage: UNK
     Dates: start: 20020101, end: 20030101

REACTIONS (1)
  - PULMONARY EMBOLISM [None]
